FAERS Safety Report 13970278 (Version 1)
Quarter: 2017Q3

REPORT INFORMATION
  Report Type: Spontaneous
  Country: JP (occurrence: JP)
  Receive Date: 20170914
  Receipt Date: 20170914
  Transmission Date: 20171128
  Serious: Yes (Other)
  Sender: FDA-Public Use
  Company Number: PHJP1900JP005528

PATIENT
  Age: 94 Year
  Sex: Female

DRUGS (1)
  1. HYDERGINE [Suspect]
     Active Substance: ERGOLOID MESYLATES
     Indication: CEREBRAL ARTERIOSCLEROSIS
     Dosage: 6 MG, QD
     Route: 048
     Dates: start: 19871210, end: 19871214

REACTIONS (1)
  - Cerebral ischaemia [Recovering/Resolving]
